FAERS Safety Report 19905712 (Version 1)
Quarter: 2021Q3

REPORT INFORMATION
  Report Type: Spontaneous
  Country: CA (occurrence: CA)
  Receive Date: 20210930
  Receipt Date: 20210930
  Transmission Date: 20211014
  Serious: Yes (Hospitalization)
  Sender: FDA-Public Use
  Company Number: CA-TEVA-2021-CA-1958262

PATIENT
  Age: 15 Year
  Sex: Male

DRUGS (1)
  1. VINCRISTINE SULFATE. [Suspect]
     Active Substance: VINCRISTINE SULFATE
     Route: 042

REACTIONS (2)
  - Pyrexia [Unknown]
  - Neutropenia [Unknown]
